FAERS Safety Report 4934841-9 (Version None)
Quarter: 2006Q1

REPORT INFORMATION
  Report Type: 
  Country: None (occurrence: None)
  Receive Date: 20060303
  Receipt Date: 20060222
  Transmission Date: 20060701
  Serious: Yes (Other)
  Sender: FDA-Public Use
  Company Number: GXKR2006AU01119

PATIENT
  Age: 31 Year
  Sex: Female

DRUGS (2)
  1. METFORMIN HCL [Suspect]
     Indication: OVULATION INDUCTION
     Dosage: 500 MG TID
     Dates: start: 20040301
  2. CLOMIPHENE (NGX) (CLOMIFENE CITRATE) [Suspect]
     Dosage: 75 MG QD
     Dates: start: 20040301

REACTIONS (6)
  - ABORTION INDUCED [None]
  - ABORTION MISSED [None]
  - CAESAREAN SECTION [None]
  - DRUG EXPOSURE BEFORE PREGNANCY [None]
  - MULTIPLE PREGNANCY [None]
  - TWIN PREGNANCY [None]
